FAERS Safety Report 12888981 (Version 2)
Quarter: 2019Q1

REPORT INFORMATION
  Report Type: Spontaneous
  Country: US (occurrence: US)
  Receive Date: 20161027
  Receipt Date: 20190212
  Transmission Date: 20190417
  Serious: Yes (Hospitalization, Other)
  Sender: FDA-Public Use
  Company Number: US-PFIZER INC-2016495833

PATIENT
  Age: 76 Year
  Sex: Female

DRUGS (1)
  1. XELJANZ [Suspect]
     Active Substance: TOFACITINIB CITRATE
     Indication: RHEUMATOID ARTHRITIS
     Dosage: 5 MG, DAILY (A DAY)

REACTIONS (5)
  - Diverticulitis [Unknown]
  - Bedridden [Unknown]
  - Peripheral arterial occlusive disease [Unknown]
  - Peripheral artery thrombosis [Unknown]
  - Squamous cell carcinoma [Unknown]
